FAERS Safety Report 12803969 (Version 1)
Quarter: 2016Q4

REPORT INFORMATION
  Report Type: Spontaneous
  Country: GB (occurrence: GB)
  Receive Date: 20161003
  Receipt Date: 20161003
  Transmission Date: 20170207
  Serious: Yes (Death, Other)
  Sender: FDA-Public Use
  Company Number: GB-PFIZER INC-2016455238

PATIENT
  Age: 56 Year
  Sex: Female
  Weight: 66.2 kg

DRUGS (13)
  1. CELECOXIB. [Suspect]
     Active Substance: CELECOXIB
     Indication: RHEUMATOID ARTHRITIS
     Dosage: 100 MG, 2X/DAY
     Route: 048
     Dates: start: 20151209
  2. DABIGATRAN [Suspect]
     Active Substance: DABIGATRAN
     Indication: PULMONARY EMBOLISM
     Dosage: 110 MG, 2X/DAY
     Route: 048
     Dates: start: 20140926, end: 20160811
  3. AMITRIPTYLINE [Concomitant]
     Active Substance: AMITRIPTYLINE
     Dosage: UNK
  4. LEVOTHYROXINE. [Concomitant]
     Active Substance: LEVOTHYROXINE
     Dosage: UNK
  5. QUININE BISULFATE [Concomitant]
     Active Substance: QUININE BISULFATE
     Dosage: UNK
  6. METHOTREXATE SODIUM. [Suspect]
     Active Substance: METHOTREXATE SODIUM
     Indication: RHEUMATOID ARTHRITIS
     Dosage: 10 UNK, UNK
     Route: 048
     Dates: start: 20151207, end: 20160804
  7. ORAMORPH [Concomitant]
     Active Substance: MORPHINE SULFATE
     Dosage: UNK
  8. ZOPICLONE [Concomitant]
     Active Substance: ZOPICLONE
     Dosage: UNK
  9. CETIRIZINE [Concomitant]
     Active Substance: CETIRIZINE HYDROCHLORIDE
     Dosage: UNK
  10. OMEPRAZOLE. [Concomitant]
     Active Substance: OMEPRAZOLE
     Dosage: UNK
  11. MST CONTINUS [Concomitant]
     Active Substance: MORPHINE SULFATE
     Dosage: UNK
  12. PARACETAMOL [Concomitant]
     Active Substance: ACETAMINOPHEN
     Dosage: UNK
  13. TAZOCIN [Concomitant]
     Active Substance: PIPERACILLIN SODIUM\TAZOBACTAM SODIUM
     Dosage: UNK
     Route: 042

REACTIONS (7)
  - Delirium [Unknown]
  - Epistaxis [Not Recovered/Not Resolved]
  - Thirst decreased [Unknown]
  - Gastrointestinal haemorrhage [Not Recovered/Not Resolved]
  - Decreased appetite [Unknown]
  - Pancytopenia [Not Recovered/Not Resolved]
  - Pneumonia [Fatal]

NARRATIVE: CASE EVENT DATE: 20160808
